FAERS Safety Report 10461736 (Version 2)
Quarter: 2014Q3

REPORT INFORMATION
  Report Type: Spontaneous
  Country: US (occurrence: US)
  Receive Date: 20140918
  Receipt Date: 20140918
  Transmission Date: 20150326
  Serious: No
  Sender: FDA-Public Use
  Company Number: US-BANPHARM-20131732

PATIENT
  Sex: Female

DRUGS (1)
  1. STAVZOR [Suspect]
     Active Substance: VALPROIC ACID
     Indication: ANGER
     Dosage: 500 MG, QD,
     Route: 048
     Dates: start: 201209, end: 201309

REACTIONS (5)
  - Dry skin [Not Recovered/Not Resolved]
  - Alopecia [Not Recovered/Not Resolved]
  - Tremor [Not Recovered/Not Resolved]
  - Pruritus [Not Recovered/Not Resolved]
  - Off label use [Not Recovered/Not Resolved]

NARRATIVE: CASE EVENT DATE: 2013
